FAERS Safety Report 4509381-1 (Version None)
Quarter: 2004Q4

REPORT INFORMATION
  Report Type: 
  Country: None (occurrence: None)
  Receive Date: 20041025
  Receipt Date: 20040625
  Transmission Date: 20050328
  Serious: Yes (Hospitalization)
  Sender: FDA-Public Use
  Company Number: US-JNJFOC-20040607894

PATIENT
  Age: 82 Year
  Sex: Female

DRUGS (7)
  1. INFLIXIMAB (INFLIXIMAB, RECOMBINANT) LYOPHILIZED POWDER [Suspect]
     Indication: RHEUMATOID ARTHRITIS
     Dosage: INTRAVENOUS
     Route: 042
     Dates: start: 20010222
  2. METHOTREXATE [Suspect]
     Indication: DRUG USE FOR UNKNOWN INDICATION
     Dosage: 2.5 MG, 1 IN 1 WEEK
  3. LASIX [Concomitant]
  4. LIPITOR [Concomitant]
  5. ATENOLOL [Concomitant]
  6. XANAX [Concomitant]
  7. ELAVIL [Concomitant]

REACTIONS (3)
  - ANAEMIA [None]
  - CONFUSIONAL STATE [None]
  - PANCYTOPENIA [None]
